FAERS Safety Report 4784324-4 (Version None)
Quarter: 2005Q3

REPORT INFORMATION
  Report Type: 
  Country: None (occurrence: None)
  Receive Date: 20050930
  Receipt Date: 20050921
  Transmission Date: 20060218
  Serious: Yes (Hospitalization)
  Sender: FDA-Public Use
  Company Number: JP-JNJFOC-20050905613

PATIENT
  Sex: Female

DRUGS (6)
  1. CRAVIT [Suspect]
     Route: 048
     Dates: start: 20050905, end: 20050909
  2. BUFFERIN [Concomitant]
     Route: 048
  3. BUFFERIN [Concomitant]
     Route: 048
  4. BUFFERIN [Concomitant]
     Route: 048
  5. EUGLUCON [Concomitant]
     Route: 048
  6. ALLOPURINOL [Concomitant]
     Route: 048

REACTIONS (3)
  - DEPRESSED LEVEL OF CONSCIOUSNESS [None]
  - HYPOGLYCAEMIA [None]
  - RHABDOMYOLYSIS [None]
